FAERS Safety Report 5943852-6 (Version None)
Quarter: 2008Q4

REPORT INFORMATION
  Report Type: 
  Country: None (occurrence: None)
  Receive Date: 20081106
  Receipt Date: 20081027
  Transmission Date: 20090506
  Serious: Yes (Other)
  Sender: FDA-Public Use
  Company Number: US-ELI_LILLY_AND_COMPANY-US200810006433

PATIENT
  Age: 68 Year
  Sex: Female

DRUGS (2)
  1. XIGRIS [Suspect]
     Indication: SEPSIS
     Dates: start: 20080601, end: 20080601
  2. ANTIBIOTICS [Concomitant]

REACTIONS (4)
  - ALOPECIA [None]
  - BLOOD COUNT ABNORMAL [None]
  - DEAFNESS [None]
  - HAEMORRHAGE [None]
